FAERS Safety Report 19836076 (Version 3)
Quarter: 2022Q4

REPORT INFORMATION
  Report Type: Spontaneous
  Country: US (occurrence: US)
  Receive Date: 20210916
  Receipt Date: 20221109
  Transmission Date: 20230113
  Serious: No
  Sender: FDA-Public Use
  Company Number: NVSC2021US208103

PATIENT
  Sex: Male

DRUGS (1)
  1. TABRECTA [Suspect]
     Active Substance: CAPMATINIB
     Indication: Product used for unknown indication
     Dosage: UNK
     Route: 065

REACTIONS (3)
  - Pharyngeal swelling [Unknown]
  - Wrong technique in product usage process [Unknown]
  - Product use complaint [Unknown]
